FAERS Safety Report 7864896-3 (Version None)
Quarter: 2011Q4

REPORT INFORMATION
  Report Type: 
  Country: None (occurrence: None)
  Receive Date: 20111028
  Receipt Date: 20100914
  Transmission Date: 20120403
  Serious: Yes (Hospitalization, Other)
  Sender: FDA-Public Use
  Company Number: US-GLAXOSMITHKLINE-A0881098A

PATIENT
  Age: 62 Year
  Sex: Female

DRUGS (5)
  1. ALBUTEROL INHALER [Concomitant]
  2. SPIRIVA [Concomitant]
  3. ADVAIR DISKUS 100/50 [Suspect]
     Indication: ASTHMA
     Dosage: 1PUFF TWICE PER DAY
     Route: 055
     Dates: start: 20050101
  4. ALBUTEROL [Concomitant]
  5. SINGULAIR [Concomitant]

REACTIONS (3)
  - PRODUCT QUALITY ISSUE [None]
  - DRUG INEFFECTIVE [None]
  - DYSPNOEA [None]
